FAERS Safety Report 7874580-8 (Version None)
Quarter: 2011Q4

REPORT INFORMATION
  Report Type: 
  Country: None (occurrence: None)
  Receive Date: 20111031
  Receipt Date: 20111025
  Transmission Date: 20120403
  Serious: Yes (Other)
  Sender: FDA-Public Use
  Company Number: CA-PFIZER INC-2011246692

PATIENT
  Age: 72 Year
  Sex: Female

DRUGS (6)
  1. SOTALOL [Concomitant]
     Indication: HEART RATE IRREGULAR
     Dosage: 80 MG, 2X/DAY, A.M. + P.M.
  2. HYDROCHLOROTHIAZIDE [Concomitant]
     Indication: HYPERTENSION
     Dosage: 25 MG, 1X/DAY
     Dates: start: 20110501
  3. XALATAN [Suspect]
     Indication: GLAUCOMA
     Dosage: 1 GTT, 1X/DAY IN BOTH EYES AT BEDTIME
     Route: 047
     Dates: start: 20110601, end: 20110920
  4. WARFARIN [Concomitant]
     Indication: THROMBOSIS
     Dosage: 1 MG, CYCLIC, 3 TIMES A WEEK
  5. AMITRIPTYLINE [Concomitant]
     Indication: FEELING OF RELAXATION
     Dosage: 50 MG, 2 TABLETS AT BEDTIME
  6. WARFARIN [Concomitant]
     Dosage: 2 MG, CYCLIC, 4 TIMES A WEEK

REACTIONS (3)
  - INTRAOCULAR PRESSURE INCREASED [None]
  - EYE INJURY [None]
  - VISUAL IMPAIRMENT [None]
